FAERS Safety Report 13542681 (Version 1)
Quarter: 2017Q2

REPORT INFORMATION
  Report Type: Spontaneous
  Country: US (occurrence: US)
  Receive Date: 20170512
  Receipt Date: 20170512
  Transmission Date: 20170830
  Serious: Yes (Other)
  Sender: FDA-Public Use
  Company Number: US-ROCHE-727828

PATIENT
  Age: 48 Year
  Sex: Male
  Weight: 110.7 kg

DRUGS (5)
  1. FOLINIC ACID [Concomitant]
     Active Substance: LEUCOVORIN
     Dosage: LAST DOSE PRIOR TO SAE
     Route: 065
  2. AVASTIN [Suspect]
     Active Substance: BEVACIZUMAB
     Route: 042
     Dates: start: 20091123, end: 20100330
  3. 5-FU [Concomitant]
     Active Substance: FLUOROURACIL
     Dosage: LAST DOSE PRIOR TO SAE
     Route: 065
  4. AVASTIN [Suspect]
     Active Substance: BEVACIZUMAB
     Indication: COLON CANCER METASTATIC
     Route: 042
  5. OXALIPLATIN. [Concomitant]
     Active Substance: OXALIPLATIN
     Dosage: LAST DOSE PRIOR TO SAE
     Route: 065

REACTIONS (2)
  - Impaired healing [Unknown]
  - Abdominal hernia [Recovered/Resolved with Sequelae]

NARRATIVE: CASE EVENT DATE: 20100325
